FAERS Safety Report 6257966-7 (Version None)
Quarter: 2009Q3

REPORT INFORMATION
  Report Type: 
  Country: None (occurrence: None)
  Receive Date: 20090707
  Receipt Date: 20090625
  Transmission Date: 20100115
  Serious: Yes (Hospitalization, Disabling, Other)
  Sender: FDA-Public Use
  Company Number: FR-PFIZER INC-2009170025

PATIENT
  Age: 38 Year

DRUGS (11)
  1. ZYVOXID [Suspect]
     Dosage: 600 MG, 2X/DAY
     Route: 042
     Dates: start: 20090121, end: 20090203
  2. DROTRECOGIN ALFA [Concomitant]
  3. PROPOFOL [Concomitant]
  4. SUFENTANIL CITRATE [Concomitant]
  5. DRUG, UNSPECIFIED [Concomitant]
  6. HYDROCORTISONE HEMISUCCINATE [Concomitant]
  7. HEPARIN SODIUM [Concomitant]
  8. TAVANIC [Concomitant]
     Dosage: 500 MG, 2X/DAY
  9. NEXIUM [Concomitant]
  10. ACETYLSALICYLATE LYSINE [Concomitant]
  11. LEVOPHED [Concomitant]

REACTIONS (4)
  - BLINDNESS [None]
  - BRAIN OEDEMA [None]
  - QUADRIPLEGIA [None]
  - TOXIC ENCEPHALOPATHY [None]
